FAERS Safety Report 9807479 (Version 1)
Quarter: 2014Q1

REPORT INFORMATION
  Report Type: Spontaneous
  Country: US (occurrence: US)
  Receive Date: 20140110
  Receipt Date: 20140110
  Transmission Date: 20141002
  Serious: No
  Sender: FDA-Public Use
  Company Number: US-SANOFI-AVENTIS-2013SA080746

PATIENT
  Sex: Female
  Weight: 72.57 kg

DRUGS (8)
  1. PLAVIX [Suspect]
     Indication: STENT PLACEMENT
     Route: 048
  2. PLAVIX [Suspect]
     Indication: MYOCARDIAL INFARCTION
     Route: 048
  3. TIMOLOL [Concomitant]
  4. NEXIUM [Concomitant]
  5. DIOVANE [Concomitant]
  6. ALLOPURINOL [Concomitant]
  7. CRESTOR [Concomitant]
  8. LORATADINE [Concomitant]
     Indication: HYPERSENSITIVITY
     Route: 065

REACTIONS (2)
  - Hot flush [Unknown]
  - Night sweats [Unknown]
